FAERS Safety Report 5652443-6 (Version None)
Quarter: 2008Q1

REPORT INFORMATION
  Report Type: 
  Country: None (occurrence: None)
  Receive Date: 20080306
  Receipt Date: 20080221
  Transmission Date: 20080703
  Serious: No
  Sender: FDA-Public Use
  Company Number: US-BAYER-200814795NA

PATIENT
  Age: 40 Year
  Sex: Female
  Weight: 57 kg

DRUGS (1)
  1. MIRENA [Suspect]
     Indication: CONTRACEPTION
     Route: 015
     Dates: start: 20071001, end: 20080212

REACTIONS (10)
  - ABDOMINAL PAIN LOWER [None]
  - ANXIETY [None]
  - DEPRESSION [None]
  - FLUID RETENTION [None]
  - HEADACHE [None]
  - METRORRHAGIA [None]
  - POST PROCEDURAL HAEMORRHAGE [None]
  - PROCEDURAL PAIN [None]
  - UTERINE ENLARGEMENT [None]
  - VAGINAL HAEMORRHAGE [None]
